FAERS Safety Report 18987161 (Version 1)
Quarter: 2021Q1

REPORT INFORMATION
  Report Type: Spontaneous
  Country: GB (occurrence: GB)
  Receive Date: 20210309
  Receipt Date: 20210309
  Transmission Date: 20210420
  Serious: Yes (Life-Threatening, Hospitalization)
  Sender: FDA-Public Use
  Company Number: GB-PFIZER INC-2021217240

PATIENT
  Age: 74 Year
  Sex: Male
  Weight: 92 kg

DRUGS (10)
  1. GENTAMICIN SULFATE. [Suspect]
     Active Substance: GENTAMICIN SULFATE
     Indication: SURGERY
     Dosage: 240 MG, UNK
     Route: 042
     Dates: start: 20210223
  2. MIDAZOLAM. [Concomitant]
     Active Substance: MIDAZOLAM
     Dosage: UNK
  3. CO?AMOXICLAV [Suspect]
     Active Substance: AMOXICILLIN\CLAVULANATE POTASSIUM
     Indication: SURGERY
     Dosage: 1.2 G, UNK
     Route: 042
     Dates: start: 20210223
  4. ROCURONIUM [Concomitant]
     Active Substance: ROCURONIUM BROMIDE
     Dosage: UNK
  5. PRAVASTATIN SODIUM. [Concomitant]
     Active Substance: PRAVASTATIN SODIUM
     Indication: ILL-DEFINED DISORDER
     Dosage: UNK
  6. PROPOFOL. [Concomitant]
     Active Substance: PROPOFOL
     Dosage: UNK
  7. AMLODIPINE [Concomitant]
     Active Substance: AMLODIPINE BESYLATE
     Indication: ILL-DEFINED DISORDER
     Dosage: UNK
  8. EMPAGLIFLOZIN [Concomitant]
     Active Substance: EMPAGLIFLOZIN
     Indication: ILL-DEFINED DISORDER
     Dosage: UNK
  9. LANSOPRAZOL [Concomitant]
     Active Substance: LANSOPRAZOLE
     Indication: ILL-DEFINED DISORDER
     Dosage: UNK
  10. REMIFENTANIL [Concomitant]
     Active Substance: REMIFENTANIL
     Dosage: UNK

REACTIONS (1)
  - Hypotension [Recovered/Resolved]

NARRATIVE: CASE EVENT DATE: 20210223
